FAERS Safety Report 24017930 (Version 1)
Quarter: 2024Q2

REPORT INFORMATION
  Report Type: Spontaneous
  Country: AU (occurrence: AU)
  Receive Date: 20240627
  Receipt Date: 20240627
  Transmission Date: 20240716
  Serious: Yes (Life-Threatening, Hospitalization)
  Sender: FDA-Public Use
  Company Number: AU-TEVA-VS-3212973

PATIENT

DRUGS (5)
  1. FENTANYL [Suspect]
     Active Substance: FENTANYL\FENTANYL CITRATE
     Indication: Product used for unknown indication
     Route: 061
  2. ORPHENADRINE [Suspect]
     Active Substance: ORPHENADRINE
     Indication: Intentional overdose
     Route: 048
  3. ASPIRIN [Suspect]
     Active Substance: ASPIRIN
     Indication: Product used for unknown indication
     Route: 048
  4. PHENYTOIN [Suspect]
     Active Substance: PHENYTOIN
     Indication: Product used for unknown indication
     Route: 048
  5. MELOXICAM [Suspect]
     Active Substance: MELOXICAM
     Indication: Product used for unknown indication
     Route: 048

REACTIONS (5)
  - Somnolence [Unknown]
  - Delirium [Unknown]
  - Toxicity to various agents [Unknown]
  - Intentional overdose [Unknown]
  - Urinary retention [Unknown]
